FAERS Safety Report 6718007-8 (Version None)
Quarter: 2010Q2

REPORT INFORMATION
  Report Type: 
  Country: None (occurrence: None)
  Receive Date: 20100510
  Receipt Date: 20100506
  Transmission Date: 20101027
  Serious: Yes (Death)
  Sender: FDA-Public Use
  Company Number: PHHY2010JP29157

PATIENT
  Age: 48 Year
  Sex: Male

DRUGS (2)
  1. AFINITOR [Suspect]
     Indication: RENAL CELL CARCINOMA
     Dosage: 10 MG DAILY
     Route: 048
     Dates: start: 20100326, end: 20100419
  2. OXYCONTIN [Concomitant]
     Dosage: UNK
     Dates: end: 20100415

REACTIONS (1)
  - DEATH [None]
